FAERS Safety Report 5674758-8 (Version None)
Quarter: 2008Q1

REPORT INFORMATION
  Report Type: 
  Country: None (occurrence: None)
  Receive Date: 20080320
  Receipt Date: 20080314
  Transmission Date: 20080703
  Serious: Yes (Hospitalization)
  Sender: FDA-Public Use
  Company Number: US-MERCK-0803USA02871

PATIENT
  Sex: Female

DRUGS (2)
  1. COZAAR [Suspect]
     Route: 048
  2. COZAAR [Suspect]
     Route: 048

REACTIONS (2)
  - BLOOD PRESSURE FLUCTUATION [None]
  - HYPERTENSION [None]
